FAERS Safety Report 9735436 (Version 1)
Quarter: 2013Q4

REPORT INFORMATION
  Report Type: Spontaneous
  Country: US (occurrence: US)
  Receive Date: 20131206
  Receipt Date: 20131206
  Transmission Date: 20140711
  Serious: No
  Sender: FDA-Public Use
  Company Number: US-GILEAD-2009-0022795

PATIENT
  Sex: Female
  Weight: 69.85 kg

DRUGS (13)
  1. LETAIRIS [Suspect]
     Indication: PULMONARY ARTERIAL HYPERTENSION
     Route: 048
     Dates: start: 20081222
  2. REVATIO [Concomitant]
  3. TIAZAC [Concomitant]
  4. SPIRONOLACTONE [Concomitant]
  5. WARFARIN [Concomitant]
  6. HYDROCODONE-APAP [Concomitant]
  7. DIAZEPAM [Concomitant]
  8. DOXEPIN [Concomitant]
  9. EFFEXOR [Concomitant]
  10. CALCIUM [Concomitant]
  11. MAGNESIUM [Concomitant]
  12. MULTIVITAMIN [Concomitant]
  13. PROCHLORPERAZINE [Concomitant]

REACTIONS (1)
  - Headache [Unknown]
